FAERS Safety Report 10193209 (Version 1)
Quarter: 2014Q2

REPORT INFORMATION
  Report Type: Spontaneous
  Country: US (occurrence: US)
  Receive Date: 20140524
  Receipt Date: 20140524
  Transmission Date: 20141212
  Serious: No
  Sender: FDA-Public Use
  Company Number: US-SA-2013SA110951

PATIENT
  Age: 71 Year
  Sex: Female
  Weight: 71.66 kg

DRUGS (7)
  1. LANTUS SOLOSTAR [Suspect]
     Indication: TYPE 2 DIABETES MELLITUS
     Dosage: DOSE:55 UNIT(S)
     Route: 051
     Dates: start: 201301
  2. LANTUS SOLOSTAR [Suspect]
     Indication: TYPE 2 DIABETES MELLITUS
     Dosage: DOSE:55 UNIT(S)
     Route: 051
     Dates: start: 201301
  3. SOLOSTAR [Concomitant]
  4. GLIPIZIDE [Concomitant]
  5. GABAPENTIN [Concomitant]
     Indication: NEURALGIA
  6. PLAVIX [Concomitant]
  7. NADOLOL [Concomitant]
     Indication: BLOOD PRESSURE

REACTIONS (6)
  - Burning sensation [Not Recovered/Not Resolved]
  - Skin discolouration [Not Recovered/Not Resolved]
  - Pain [Unknown]
  - Gait disturbance [Unknown]
  - Insomnia [Unknown]
  - Blood glucose increased [Unknown]
